FAERS Safety Report 13635100 (Version 1)
Quarter: 2017Q2

REPORT INFORMATION
  Report Type: Spontaneous
  Country: US (occurrence: US)
  Receive Date: 20170531
  Receipt Date: 20170531
  Transmission Date: 20170830
  Serious: No
  Sender: FDA-Public Use
  Company Number: US-ASTELLAS-1684294

PATIENT
  Age: 58 Year
  Sex: Female

DRUGS (4)
  1. TARCEVA [Suspect]
     Active Substance: ERLOTINIB HYDROCHLORIDE
     Indication: LUNG NEOPLASM MALIGNANT
     Route: 048
  2. TRIAMCINOLONE [Concomitant]
     Active Substance: TRIAMCINOLONE
  3. DOCUSATE SODIUM. [Concomitant]
     Active Substance: DOCUSATE SODIUM
  4. PAROXETINE. [Concomitant]
     Active Substance: PAROXETINE

REACTIONS (6)
  - Cellulitis [Unknown]
  - Diarrhoea [Unknown]
  - Ingrowing nail [Unknown]
  - Fatigue [Unknown]
  - Constipation [Unknown]
  - Dry skin [Unknown]
